FAERS Safety Report 9968981 (Version 1)
Quarter: 2014Q1

REPORT INFORMATION
  Report Type: Report from Study
  Country: US (occurrence: US)
  Receive Date: 20140306
  Receipt Date: 20140306
  Transmission Date: 20141002
  Serious: No
  Sender: FDA-Public Use
  Company Number: US-ABBVIE-13P-163-1144118-00

PATIENT
  Age: 37 Year
  Sex: Male

DRUGS (9)
  1. HUMIRA [Suspect]
     Indication: PSORIASIS
     Route: 058
     Dates: end: 20130724
  2. ESCITALOPRAM OXALATE [Concomitant]
     Indication: PRODUCT USED FOR UNKNOWN INDICATION
  3. ALPRAZOLAM [Concomitant]
     Indication: PRODUCT USED FOR UNKNOWN INDICATION
  4. CITALOPRAM HBR [Concomitant]
     Indication: PRODUCT USED FOR UNKNOWN INDICATION
  5. HALOBETASOL PROPLONATE [Concomitant]
     Indication: PRODUCT USED FOR UNKNOWN INDICATION
  6. TAMSULOSIN HCL [Concomitant]
     Indication: PRODUCT USED FOR UNKNOWN INDICATION
  7. BUSPIRONE HCL [Concomitant]
     Indication: PRODUCT USED FOR UNKNOWN INDICATION
  8. FLUCONAZOLE [Concomitant]
     Indication: PRODUCT USED FOR UNKNOWN INDICATION
  9. PROMETHAZINE - CODEINE [Concomitant]
     Indication: PRODUCT USED FOR UNKNOWN INDICATION
     Dosage: 8.25-10

REACTIONS (1)
  - Upper respiratory tract infection [Recovered/Resolved]
